FAERS Safety Report 5061702-X (Version None)
Quarter: 2006Q3

REPORT INFORMATION
  Report Type: 
  Country: None (occurrence: None)
  Receive Date: 20060720
  Receipt Date: 20060711
  Transmission Date: 20061208
  Serious: Yes (Other)
  Sender: FDA-Public Use
  Company Number: 111514ISR

PATIENT
  Age: 38 Year
  Sex: Male

DRUGS (10)
  1. ATENOLOL [Suspect]
     Indication: HYPERTENSION
  2. DOXAZOSIN [Suspect]
  3. ACETYLSALICYLIC ACID SRT [Suspect]
  4. ATORVASTATIN CALCIUM [Suspect]
     Indication: HYPERLIPIDAEMIA
  5. MYCOPHENOLATE MOFETIL [Suspect]
     Indication: RENAL TRANSPLANT
     Dosage: 1000 MILLIGRAM ORAL
     Route: 048
     Dates: start: 20020615, end: 20060315
  6. CYCLOSPORINE [Suspect]
  7. ISONIAZID [Suspect]
  8. LAMIVUDINE [Suspect]
     Indication: HEPATITIS B
  9. PERINDOPRIL ERBUMINE [Suspect]
     Indication: HYPERTENSION
  10. PYRIDOXINE HCL [Suspect]

REACTIONS (1)
  - SPERMATOZOA PROGRESSIVE MOTILITY ABNORMAL [None]
